FAERS Safety Report 5670083-X (Version None)
Quarter: 2008Q1

REPORT INFORMATION
  Report Type: 
  Country: None (occurrence: None)
  Receive Date: 20080312
  Receipt Date: 20080222
  Transmission Date: 20080703
  Serious: Yes (Disabling)
  Sender: FDA-Public Use
  Company Number: DSA_31570_2008

PATIENT
  Sex: Female

DRUGS (8)
  1. DILTIAZEM [Suspect]
     Indication: DRUG USE FOR UNKNOWN INDICATION
     Dosage: 1 DF 1X
     Dates: start: 20071101, end: 20071101
  2. BALCOR (BACLOR - DILTIAZEM HYDROCHLORIDE) [Suspect]
     Indication: DRUG USE FOR UNKNOWN INDICATION
     Dosage: DF
     Dates: start: 20071101
  3. LIPITOR [Suspect]
     Indication: HYPERCHOLESTEROLAEMIA
     Dosage: 10 MG, QD; ORAL
     Route: 048
     Dates: start: 19960101
  4. SYNTHROID [Concomitant]
  5. ACTIVELLE [Concomitant]
  6. OVESTRION [Concomitant]
  7. IMIPRAMINE [Concomitant]
  8. DIAZEPAM [Concomitant]

REACTIONS (1)
  - HYPERSENSITIVITY [None]
